FAERS Safety Report 15996981 (Version 2)
Quarter: 2019Q2

REPORT INFORMATION
  Report Type: Report from Study
  Country: US (occurrence: US)
  Receive Date: 20190222
  Receipt Date: 20190409
  Transmission Date: 20190711
  Serious: Yes (Death, Other)
  Sender: FDA-Public Use
  Company Number: US-BRISTOL-MYERS SQUIBB COMPANY-BMS-2019-015342

PATIENT
  Sex: Male
  Weight: 76.65 kg

DRUGS (1)
  1. BELATACEPT [Suspect]
     Active Substance: BELATACEPT
     Indication: TRANSPLANT REJECTION
     Dosage: UNK UNK, QMO
     Route: 042
     Dates: start: 20160311

REACTIONS (3)
  - Transplant failure [Unknown]
  - Infection [Unknown]
  - Sepsis [Fatal]

NARRATIVE: CASE EVENT DATE: 2017
